FAERS Safety Report 20142095 (Version 4)
Quarter: 2022Q4

REPORT INFORMATION
  Report Type: Report from Study
  Country: US (occurrence: US)
  Receive Date: 20211202
  Receipt Date: 20221005
  Transmission Date: 20230113
  Serious: Yes (Hospitalization)
  Sender: FDA-Public Use
  Company Number: US-TAKEDA-2020TUS053183

PATIENT
  Sex: Male

DRUGS (1)
  1. HUMAN IMMUNOGLOBULIN G [Suspect]
     Active Substance: HUMAN IMMUNOGLOBULIN G
     Indication: Primary immunodeficiency syndrome
     Dosage: UNK
     Route: 042

REACTIONS (7)
  - Respiratory disorder [Unknown]
  - Ear infection [Unknown]
  - Otorrhoea [Unknown]
  - Surgery [Unknown]
  - Illness [Unknown]
  - Ear disorder [Unknown]
  - Sinus disorder [Unknown]
